FAERS Safety Report 5975505-2 (Version None)
Quarter: 2008Q4

REPORT INFORMATION
  Report Type: 
  Country: None (occurrence: None)
  Receive Date: 20081202
  Receipt Date: 20081126
  Transmission Date: 20090506
  Serious: Yes (Hospitalization)
  Sender: FDA-Public Use
  Company Number: DE-TEVA-179335ISR

PATIENT
  Sex: Female

DRUGS (8)
  1. COPAXONE [Suspect]
     Indication: MULTIPLE SCLEROSIS
     Route: 058
     Dates: end: 20081101
  2. PREDNISONE TAB [Concomitant]
     Route: 048
  3. PANTOPRAZOLE SODIUM [Concomitant]
     Route: 048
  4. BACLOFEN [Concomitant]
     Route: 048
  5. DULOXETINE [Concomitant]
     Dosage: 1 TBL
     Route: 048
  6. PREGABALIN [Concomitant]
     Dosage: 1 TBL
     Route: 048
  7. LACTULOSE [Concomitant]
     Dosage: 20 DROPS
     Route: 048
  8. OXYCODON/NALOXON [Concomitant]
     Dosage: 2 TBL
     Route: 048

REACTIONS (1)
  - PSEUDOCYST [None]
